FAERS Safety Report 21686150 (Version 1)
Quarter: 2022Q4

REPORT INFORMATION
  Report Type: Spontaneous
  Country: US (occurrence: US)
  Receive Date: 20221206
  Receipt Date: 20221206
  Transmission Date: 20230113
  Serious: Yes (Other)
  Sender: FDA-Public Use
  Company Number: US-009507513-2211USA009638

PATIENT
  Age: 49 Year
  Sex: Female

DRUGS (2)
  1. KEYTRUDA [Suspect]
     Active Substance: PEMBROLIZUMAB
     Indication: Thyroid cancer
     Dosage: UNK
  2. DABRAFENIB\TRAMETINIB [Concomitant]
     Active Substance: DABRAFENIB\TRAMETINIB
     Indication: Thyroid cancer
     Dosage: UNK

REACTIONS (4)
  - Pulmonary sarcoidosis [Recovering/Resolving]
  - Sarcoidosis [Recovering/Resolving]
  - Sarcoid-like reaction [Recovering/Resolving]
  - Product use in unapproved indication [Unknown]
